FAERS Safety Report 19037274 (Version 4)
Quarter: 2022Q4

REPORT INFORMATION
  Report Type: Other
  Country: US (occurrence: None)
  Receive Date: 20210322
  Receipt Date: 20221227
  Transmission Date: 20230113
  Serious: Yes (Other)
  Sender: FDA-Public Use
  Company Number: US-ROCHE-2786511

PATIENT
  Age: 25 Year
  Sex: Female
  Weight: 89.892 kg

DRUGS (7)
  1. OCREVUS [Suspect]
     Active Substance: OCRELIZUMAB
     Indication: Relapsing-remitting multiple sclerosis
     Dosage: RECEIVED 2 HALF DOSES
     Route: 042
     Dates: start: 2016, end: 2016
  2. OCREVUS [Suspect]
     Active Substance: OCRELIZUMAB
     Dosage: RECEIVED 2 HALF DOSES
     Route: 042
     Dates: start: 201708, end: 201708
  3. OCREVUS [Suspect]
     Active Substance: OCRELIZUMAB
     Dosage: RECEIVED 1 HALF DOSE
     Route: 042
     Dates: start: 2019, end: 2019
  4. OCREVUS [Suspect]
     Active Substance: OCRELIZUMAB
     Route: 042
     Dates: start: 201907
  5. OCREVUS [Suspect]
     Active Substance: OCRELIZUMAB
     Dosage: RECEIVED 1 HALF DOSE
     Route: 042
     Dates: start: 20210128, end: 20210128
  6. VITAMIN B6 [Concomitant]
     Active Substance: PYRIDOXINE HYDROCHLORIDE
     Indication: Nausea
     Route: 048
     Dates: start: 202103
  7. VITAMIN B6 [Concomitant]
     Active Substance: PYRIDOXINE HYDROCHLORIDE
     Dosage: DOSE=25-50MG AS NEEDED
     Route: 048

REACTIONS (8)
  - Neuromyopathy [Not Recovered/Not Resolved]
  - Tooth infection [Unknown]
  - Oral pain [Unknown]
  - Orthostatic hypotension [Not Recovered/Not Resolved]
  - Memory impairment [Not Recovered/Not Resolved]
  - Nausea [Not Recovered/Not Resolved]
  - Vitamin D decreased [Unknown]
  - Maternal exposure during pregnancy [Unknown]

NARRATIVE: CASE EVENT DATE: 20190101
